FAERS Safety Report 8231011-6 (Version None)
Quarter: 2012Q1

REPORT INFORMATION
  Report Type: 
  Country: None (occurrence: None)
  Receive Date: 20120323
  Receipt Date: 20120319
  Transmission Date: 20120608
  Serious: Yes (Other)
  Sender: FDA-Public Use
  Company Number: US-PFIZER INC-2012071627

PATIENT
  Sex: Female
  Weight: 109 kg

DRUGS (4)
  1. GLUCOTROL XL [Suspect]
     Indication: DIABETES MELLITUS
     Dosage: UNK
     Route: 048
     Dates: end: 20120201
  2. PREDNISONE TAB [Suspect]
     Indication: FOOD ALLERGY
     Dosage: UNK, 2X/DAY
  3. NEURONTIN [Concomitant]
     Dosage: UNK
  4. PROTONIX [Concomitant]
     Dosage: UNK

REACTIONS (1)
  - BLOOD GLUCOSE ABNORMAL [None]
